FAERS Safety Report 7937400-9 (Version None)
Quarter: 2011Q4

REPORT INFORMATION
  Report Type: 
  Country: None (occurrence: None)
  Receive Date: 20111123
  Receipt Date: 20111116
  Transmission Date: 20120403
  Serious: Yes (Other)
  Sender: FDA-Public Use
  Company Number: IN-BAXTER-2011BH036694

PATIENT
  Age: 9 Month
  Sex: Male
  Weight: 6 kg

DRUGS (7)
  1. FENTANYL CITRATE [Suspect]
     Indication: ANALGESIC THERAPY
     Route: 042
  2. ATRACURIUM BESYLATE [Suspect]
     Indication: HYPOTONIA
     Route: 042
  3. PROPOFOL [Suspect]
     Indication: INDUCTION OF ANAESTHESIA
     Route: 042
  4. ADRENALIN IN OIL INJ [Suspect]
     Indication: VENTRICULAR FIBRILLATION
     Route: 042
  5. MIDAZOLAM HYDROCHLORIDE [Suspect]
     Indication: PREMEDICATION
     Route: 042
  6. ATROPINE SULFATE [Suspect]
     Indication: VENTRICULAR FIBRILLATION
     Route: 042
  7. SEVOFLURANE [Suspect]
     Indication: MAINTENANCE OF ANAESTHESIA
     Route: 055

REACTIONS (3)
  - VENTRICULAR FIBRILLATION [None]
  - HYPOKALAEMIA [None]
  - LONG QT SYNDROME [None]
